FAERS Safety Report 12660312 (Version 2)
Quarter: 2016Q3

REPORT INFORMATION
  Report Type: Spontaneous
  Country: US (occurrence: US)
  Receive Date: 20160817
  Receipt Date: 20160922
  Transmission Date: 20161109
  Serious: Yes (Hospitalization)
  Sender: FDA-Public Use
  Company Number: US-ASTRAZENECA-2010BM06379

PATIENT
  Age: 642 Month
  Sex: Female
  Weight: 120.2 kg

DRUGS (11)
  1. TUMS [Concomitant]
     Active Substance: CALCIUM CARBONATE
     Indication: NAUSEA
  2. NOVOLOG [Concomitant]
     Active Substance: INSULIN ASPART
     Indication: TYPE 2 DIABETES MELLITUS
     Dosage: 7 UNITS OVER 450
     Route: 058
  3. BYDUREON [Suspect]
     Active Substance: EXENATIDE
     Indication: TYPE 2 DIABETES MELLITUS
     Route: 058
  4. NEURONTIN [Concomitant]
     Active Substance: GABAPENTIN
     Indication: PAIN
     Dosage: POSSIBLE 200MG, TWICE A DAY
     Route: 048
     Dates: start: 2016
  5. VITAMINS [Concomitant]
     Active Substance: VITAMINS
  6. NEURONTIN [Concomitant]
     Active Substance: GABAPENTIN
     Indication: NEUROPATHY PERIPHERAL
     Dosage: POSSIBLE 200MG, TWICE A DAY
     Route: 048
     Dates: start: 2016
  7. GLUCOPHAGE [Concomitant]
     Active Substance: METFORMIN HYDROCHLORIDE
     Dosage: UNK
  8. INSULIN [Concomitant]
     Active Substance: INSULIN NOS
  9. BYETTA [Suspect]
     Active Substance: EXENATIDE
     Indication: TYPE 2 DIABETES MELLITUS
     Route: 058
     Dates: start: 20100428
  10. EXENATIDE [Concomitant]
     Active Substance: EXENATIDE
  11. LEVEMIR [Concomitant]
     Active Substance: INSULIN DETEMIR
     Indication: TYPE 2 DIABETES MELLITUS
     Dosage: 46 UNITS IN THE AM AND 40 UNITS IN THE PM
     Route: 058

REACTIONS (11)
  - Sepsis [Unknown]
  - Nausea [Not Recovered/Not Resolved]
  - Intentional product misuse [Unknown]
  - Localised infection [Unknown]
  - Peripheral swelling [Unknown]
  - Abdominal mass [Unknown]
  - Pain in extremity [Unknown]
  - Glycosylated haemoglobin increased [Unknown]
  - Lymphoedema [Unknown]
  - Neuropathy peripheral [Unknown]
  - Needle issue [Unknown]

NARRATIVE: CASE EVENT DATE: 201201
